FAERS Safety Report 25377015 (Version 1)
Quarter: 2025Q2

REPORT INFORMATION
  Report Type: Spontaneous
  Country: JP (occurrence: JP)
  Receive Date: 20250530
  Receipt Date: 20250530
  Transmission Date: 20250717
  Serious: Yes (Death)
  Sender: ASTELLAS
  Company Number: JP-ASTELLAS-2024JP005570

PATIENT
  Age: 9 Decade
  Sex: Male

DRUGS (9)
  1. VYLOY [Suspect]
     Active Substance: ZOLBETUXIMAB-CLZB
     Indication: Gastric cancer
     Route: 042
     Dates: start: 20240730, end: 20240730
  2. VYLOY [Suspect]
     Active Substance: ZOLBETUXIMAB-CLZB
     Route: 042
  3. VYLOY [Suspect]
     Active Substance: ZOLBETUXIMAB-CLZB
     Route: 042
     Dates: start: 202504
  4. OLANZAPINE [Suspect]
     Active Substance: OLANZAPINE
     Indication: Product used for unknown indication
     Route: 048
  5. XELODA [Suspect]
     Active Substance: CAPECITABINE
     Indication: Product used for unknown indication
     Route: 065
  6. XELODA [Suspect]
     Active Substance: CAPECITABINE
     Route: 048
  7. OXALIPLATIN [Concomitant]
     Active Substance: OXALIPLATIN
     Indication: Product used for unknown indication
     Route: 065
  8. OXALIPLATIN [Concomitant]
     Active Substance: OXALIPLATIN
     Route: 065
  9. URSO [Concomitant]
     Active Substance: URSODIOL
     Indication: Liver disorder
     Route: 065

REACTIONS (6)
  - Hypoglycaemia [Fatal]
  - Somnolence [Recovered/Resolved]
  - Neutrophil count decreased [Recovering/Resolving]
  - Platelet count decreased [Unknown]
  - Decreased appetite [Not Recovered/Not Resolved]
  - Alanine aminotransferase increased [Recovered/Resolved]

NARRATIVE: CASE EVENT DATE: 20240730
